FAERS Safety Report 5874586-4 (Version None)
Quarter: 2008Q3

REPORT INFORMATION
  Report Type: 
  Country: None (occurrence: None)
  Receive Date: 20080905
  Receipt Date: 20080905
  Transmission Date: 20090109
  Serious: Yes (Hospitalization)
  Sender: FDA-Public Use
  Company Number: None

PATIENT
  Age: 80 Year
  Sex: Male
  Weight: 72.6 kg

DRUGS (2)
  1. SIMVASTATIN [Suspect]
     Indication: HYPERLIPIDAEMIA
     Dosage: 80 MG HS PO
     Route: 048
     Dates: start: 20000814, end: 20080814
  2. PIOGLITAZONE [Suspect]
     Indication: DIABETES MELLITUS
     Dosage: 45 MG EVERY DAY PO
     Route: 048
     Dates: start: 20080125, end: 20080816

REACTIONS (8)
  - CEREBRAL DISORDER [None]
  - CONFUSIONAL STATE [None]
  - FALL [None]
  - HEPATIC ENZYME INCREASED [None]
  - HYPOPHAGIA [None]
  - RHABDOMYOLYSIS [None]
  - TREATMENT NONCOMPLIANCE [None]
  - TREMOR [None]
